FAERS Safety Report 12490526 (Version 1)
Quarter: 2016Q2

REPORT INFORMATION
  Report Type: Spontaneous
  Country: AU (occurrence: AU)
  Receive Date: 20160622
  Receipt Date: 20160622
  Transmission Date: 20160815
  Serious: Yes (Hospitalization, Other)
  Sender: FDA-Public Use
  Company Number: AU-AMGEN-AUSSP2016076650

PATIENT
  Age: 97 Year
  Sex: Female

DRUGS (1)
  1. SENSIPAR [Suspect]
     Active Substance: CINACALCET HYDROCHLORIDE
     Indication: HYPERPARATHYROIDISM
     Dosage: 30 MG, QD
     Route: 048
     Dates: start: 201212

REACTIONS (4)
  - Dementia [Not Recovered/Not Resolved]
  - Constipation [Unknown]
  - Malaise [Unknown]
  - Dehydration [Unknown]
